FAERS Safety Report 5488741-9 (Version None)
Quarter: 2007Q4

REPORT INFORMATION
  Report Type: 
  Country: None (occurrence: None)
  Receive Date: 20071017
  Receipt Date: 20071010
  Transmission Date: 20080405
  Serious: Yes (Hospitalization)
  Sender: FDA-Public Use
  Company Number: GR-ROXANE LABORATORIES, INC-2007-BP-22465RO

PATIENT
  Age: 12 Year
  Sex: Male

DRUGS (10)
  1. PREDNISONE [Suspect]
     Indication: IMMUNOSUPPRESSION
  2. RANITIDINE HCL [Suspect]
  3. CYCLOSPORINE [Suspect]
     Indication: IMMUNOSUPPRESSION
  4. CEFTRIAXONE [Concomitant]
     Route: 042
  5. ACYCLOVIR [Concomitant]
  6. DEXAMETHASONE 0.5MG TAB [Concomitant]
     Route: 042
  7. VALPROIC ACID [Concomitant]
     Route: 042
  8. AMPICILLIN [Concomitant]
     Indication: LISTERIOSIS
     Route: 042
  9. AMOXICILLIN [Concomitant]
     Indication: LISTERIOSIS
     Route: 048
  10. PHENOBARBITAL TAB [Concomitant]
     Indication: EPILEPSY

REACTIONS (9)
  - BRAIN ABSCESS [None]
  - FOCAL GLOMERULOSCLEROSIS [None]
  - LISTERIOSIS [None]
  - NEPHROTIC SYNDROME [None]
  - NUCHAL RIGIDITY [None]
  - PYREXIA [None]
  - SPEECH DISORDER [None]
  - TACHYPNOEA [None]
  - VOMITING [None]
